FAERS Safety Report 26062336 (Version 2)
Quarter: 2025Q4

REPORT INFORMATION
  Report Type: Report from Study
  Country: IL (occurrence: IL)
  Receive Date: 20251119
  Receipt Date: 20251209
  Transmission Date: 20260117
  Serious: Yes (Death, Hospitalization)
  Sender: ABBVIE
  Company Number: IL-ABBVIE-6553102

PATIENT
  Age: 75 Year
  Sex: Male

DRUGS (3)
  1. CARBIDOPA\LEVODOPA [Suspect]
     Active Substance: CARBIDOPA\LEVODOPA
     Indication: Parkinson^s disease
     Dosage: ADDITIONAL TUBE FILING (ML): 3.0, CONTINUOUS DOSAGE (ML/H): 3.5, EXTRA DOSAGE (ML): 1.5 THERAPY D...
     Route: 050
     Dates: start: 20180707
  2. CARBIDOPA\LEVODOPA [Suspect]
     Active Substance: CARBIDOPA\LEVODOPA
     Dosage: ADDITIONAL TUBE FILING (ML): 3.0, CONTINUOUS DOSAGE (ML/H): 3.8, EXTRA DOSAGE (ML): 1.5 THERAPY D...
     Route: 050
  3. CARBIDOPA\LEVODOPA [Suspect]
     Active Substance: CARBIDOPA\LEVODOPA
     Dosage: ADDITIONAL TUBE FILING (ML): 3.0, CONTINUOUS DOSAGE (ML/H): 4.3, EXTRA DOSAGE (ML): 1.5 THERAPY D...
     Route: 050

REACTIONS (5)
  - Death [Fatal]
  - General physical health deterioration [Unknown]
  - Feeding disorder [Unknown]
  - Hyporesponsive to stimuli [Unknown]
  - Pyrexia [Unknown]

NARRATIVE: CASE EVENT DATE: 20251113
